FAERS Safety Report 7723327-4 (Version None)
Quarter: 2011Q3

REPORT INFORMATION
  Report Type: 
  Country: None (occurrence: None)
  Receive Date: 20110901
  Receipt Date: 20110901
  Transmission Date: 20111222
  Serious: Yes (Hospitalization)
  Sender: FDA-Public Use
  Company Number: None

PATIENT
  Age: 48 Year
  Sex: Female
  Weight: 66.7 kg

DRUGS (8)
  1. LISINOPRIL [Concomitant]
     Route: 048
  2. MOTRIN/SPIRIVA/PROAIR PRN [Concomitant]
  3. ACTOS [Suspect]
     Indication: TYPE 2 DIABETES MELLITUS
     Dates: start: 20080822, end: 20110822
  4. TRAZODONE HYDROCHLORIDE [Concomitant]
     Route: 048
  5. ASPIRIN [Concomitant]
     Route: 048
  6. OMEPRAZOLE [Concomitant]
     Route: 048
  7. SEROQUEL [Concomitant]
     Route: 048
  8. TYLENOL-500 [Concomitant]
     Route: 048

REACTIONS (7)
  - VOMITING [None]
  - FAECES PALE [None]
  - FATIGUE [None]
  - DECREASED APPETITE [None]
  - NAUSEA [None]
  - HEPATITIS [None]
  - TOXICITY TO VARIOUS AGENTS [None]
